FAERS Safety Report 8011725-3 (Version None)
Quarter: 2011Q4

REPORT INFORMATION
  Report Type: 
  Country: None (occurrence: None)
  Receive Date: 20111228
  Receipt Date: 20111222
  Transmission Date: 20120403
  Serious: No
  Sender: FDA-Public Use
  Company Number: US-BAYER-2011-123727

PATIENT
  Sex: Female

DRUGS (2)
  1. NAPROXEN (ALEVE) [Suspect]
     Indication: PAIN
  2. ALEVE (CAPLET) [Suspect]
     Indication: PAIN
     Dosage: 2 TABS BID
     Route: 048

REACTIONS (3)
  - NO ADVERSE EVENT [None]
  - PAIN [None]
  - OVERDOSE [None]
